FAERS Safety Report 15791207 (Version 1)
Quarter: 2019Q1

REPORT INFORMATION
  Report Type: Spontaneous
  Country: ZA (occurrence: ZA)
  Receive Date: 20190104
  Receipt Date: 20190104
  Transmission Date: 20190417
  Serious: Yes (Hospitalization)
  Sender: FDA-Public Use
  Company Number: PHHY2019ZA000570

PATIENT
  Age: 44 Year
  Sex: Male

DRUGS (1)
  1. ISOSORBIDE DINITRATE SANDOZ [Suspect]
     Active Substance: ISOSORBIDE DINITRATE
     Indication: CARDIAC DISORDER
     Dosage: 5 MG, UNK
     Route: 048

REACTIONS (2)
  - Influenza [Unknown]
  - Diabetes mellitus inadequate control [Unknown]
